FAERS Safety Report 23811065 (Version 1)
Quarter: 2024Q2

REPORT INFORMATION
  Report Type: Report from Study
  Country: US (occurrence: US)
  Receive Date: 20240502
  Receipt Date: 20240502
  Transmission Date: 20240715
  Serious: Yes (Hospitalization, Other)
  Sender: FDA-Public Use
  Company Number: US-GILEAD-2024-0671412

PATIENT
  Sex: Male

DRUGS (1)
  1. AZTREONAM LYSINE [Suspect]
     Active Substance: AZTREONAM LYSINE
     Indication: Infective exacerbation of bronchiectasis
     Dosage: INHALE 1 VIAL VIA ALTERA NEBULIZER THREE TIMES DAILY FOR 28 DAYS. CONTINUE TO CYCLE EVERY OTHER MONT
     Route: 055

REACTIONS (2)
  - Pneumonia [Unknown]
  - Off label use [Unknown]
